FAERS Safety Report 8732721 (Version 3)
Quarter: 2016Q1

REPORT INFORMATION
  Report Type: Report from Study
  Country: US (occurrence: US)
  Receive Date: 20120820
  Receipt Date: 20160105
  Transmission Date: 20160526
  Serious: Yes (Death, Other)
  Sender: FDA-Public Use
  Company Number: US-ROCHE-1102798

PATIENT
  Sex: Male

DRUGS (1)
  1. ZELBORAF [Suspect]
     Active Substance: VEMURAFENIB
     Indication: MALIGNANT MELANOMA
     Route: 065

REACTIONS (15)
  - Disease progression [Unknown]
  - Arthralgia [Unknown]
  - Asthenia [Unknown]
  - Fatigue [Unknown]
  - Rash erythematous [Unknown]
  - Melanocytic naevus [Unknown]
  - Squamous cell carcinoma [Unknown]
  - Neoplasm [Unknown]
  - Sunburn [Unknown]
  - Rash [Unknown]
  - Weight decreased [Unknown]
  - Decreased appetite [Unknown]
  - Metastatic malignant melanoma [Fatal]
  - Nausea [Unknown]
  - Acrochordon [Unknown]
